FAERS Safety Report 9592505 (Version 2)
Quarter: 2013Q4

REPORT INFORMATION
  Report Type: Spontaneous
  Country: US (occurrence: US)
  Receive Date: 20131004
  Receipt Date: 20131107
  Transmission Date: 20140711
  Serious: Yes (Other)
  Sender: FDA-Public Use
  Company Number: US-JNJFOC-20130915750

PATIENT
  Age: 55 Year
  Sex: Female
  Weight: 86.18 kg

DRUGS (1)
  1. REMICADE [Suspect]
     Indication: PSORIASIS
     Route: 042
     Dates: start: 20120223, end: 20130223

REACTIONS (3)
  - Basal cell carcinoma [Not Recovered/Not Resolved]
  - Metastases to lymph nodes [Recovered/Resolved]
  - Squamous cell carcinoma [Recovered/Resolved]
